FAERS Safety Report 7248340-5 (Version None)
Quarter: 2011Q1

REPORT INFORMATION
  Report Type: 
  Country: None (occurrence: None)
  Receive Date: 20110127
  Receipt Date: 20110119
  Transmission Date: 20110831
  Serious: Yes (Other)
  Sender: FDA-Public Use
  Company Number: PHHY2011SE04664

PATIENT
  Sex: Female

DRUGS (1)
  1. CERTICAN [Suspect]

REACTIONS (1)
  - CORONARY ARTERY STENOSIS [None]
